FAERS Safety Report 5619983-7 (Version None)
Quarter: 2008Q1

REPORT INFORMATION
  Report Type: 
  Country: None (occurrence: None)
  Receive Date: 20080208
  Receipt Date: 20080129
  Transmission Date: 20080703
  Serious: Yes (Hospitalization)
  Sender: FDA-Public Use
  Company Number: FR-ROCHE-543921

PATIENT
  Age: 67 Year
  Sex: Male

DRUGS (10)
  1. VALIUM [Suspect]
     Indication: DRUG USE FOR UNKNOWN INDICATION
     Route: 048
     Dates: start: 20070911, end: 20070914
  2. LASILIX [Concomitant]
  3. LASILIX [Concomitant]
  4. RISPERDAL [Concomitant]
  5. DIFFU K [Concomitant]
  6. SINTROM [Concomitant]
  7. GARDENAL [Concomitant]
     Dosage: GARDENAL 100MG
  8. MOPRAL [Concomitant]
  9. ANAFRANIL [Concomitant]
  10. EFFEXOR [Concomitant]

REACTIONS (2)
  - PNEUMONIA ASPIRATION [None]
  - SOMNOLENCE [None]
